FAERS Safety Report 7571432-8 (Version None)
Quarter: 2011Q2

REPORT INFORMATION
  Report Type: 
  Country: None (occurrence: None)
  Receive Date: 20110624
  Receipt Date: 20110622
  Transmission Date: 20111010
  Serious: Yes (Death)
  Sender: FDA-Public Use
  Company Number: PHHY2011JP55015

PATIENT
  Age: 72 Year
  Sex: Female

DRUGS (1)
  1. MINOCYCLINE HCL [Suspect]
     Indication: BRONCHITIS
     Dosage: 20000 MG, TOTAL DOSE

REACTIONS (1)
  - PNEUMONIA [None]
